FAERS Safety Report 20576018 (Version 1)
Quarter: 2022Q1

REPORT INFORMATION
  Report Type: Spontaneous
  Country: TR (occurrence: TR)
  Receive Date: 20220310
  Receipt Date: 20220310
  Transmission Date: 20220423
  Serious: Yes (Disabling)
  Sender: FDA-Public Use
  Company Number: TR-ABBOTT-2021A-1337157

PATIENT
  Age: 46 Year
  Sex: Male

DRUGS (2)
  1. TARKA [Suspect]
     Active Substance: TRANDOLAPRIL\VERAPAMIL HYDROCHLORIDE
     Indication: Blood pressure abnormal
     Route: 048
     Dates: start: 202104, end: 20210623
  2. TARKA [Suspect]
     Active Substance: TRANDOLAPRIL\VERAPAMIL HYDROCHLORIDE
     Dosage: UNIT DOSE: 1 TABLET, DAILY DOSE: 1 TABLET
     Route: 048
     Dates: start: 20210623, end: 20210627

REACTIONS (4)
  - Supraventricular extrasystoles [Recovered/Resolved]
  - Condition aggravated [Recovered/Resolved]
  - Extrasystoles [Recovered/Resolved]
  - Insomnia [Recovered/Resolved]

NARRATIVE: CASE EVENT DATE: 20210101
